FAERS Safety Report 9378544 (Version 1)
Quarter: 2013Q3

REPORT INFORMATION
  Report Type: Spontaneous
  Country: SG (occurrence: SG)
  Receive Date: 20130702
  Receipt Date: 20130702
  Transmission Date: 20140515
  Serious: Yes (Other)
  Sender: FDA-Public Use
  Company Number: SG-ROCHE-1241559

PATIENT
  Age: 54 Year
  Sex: Female
  Weight: 63 kg

DRUGS (3)
  1. PERJETA [Suspect]
     Indication: BREAST CANCER METASTATIC
     Route: 042
     Dates: start: 20130307, end: 20130523
  2. HERCEPTIN [Concomitant]
     Indication: BREAST CANCER METASTATIC
     Route: 042
     Dates: start: 20130128
  3. PACLITAXEL [Concomitant]
     Indication: BREAST CANCER METASTATIC
     Dosage: DAYS 1,8 OF 21 DAY TREATMENT CYCLE
     Route: 042
     Dates: start: 20130128

REACTIONS (6)
  - Flushing [Recovered/Resolved]
  - Dyspnoea [Recovered/Resolved]
  - Feeling hot [Recovered/Resolved]
  - Pruritus [Recovered/Resolved]
  - Chest discomfort [Not Recovered/Not Resolved]
  - Malaise [Not Recovered/Not Resolved]
